FAERS Safety Report 10412453 (Version 1)
Quarter: 2014Q3

REPORT INFORMATION
  Report Type: Spontaneous
  Country: US (occurrence: US)
  Receive Date: 20140827
  Receipt Date: 20140827
  Transmission Date: 20150326
  Serious: Yes (Other)
  Sender: FDA-Public Use
  Company Number: US-FRI-1000070112

PATIENT
  Sex: Female

DRUGS (1)
  1. ARMOUR THYROID [Suspect]
     Active Substance: THYROID, PORCINE\THYROID, UNSPECIFIED
     Dosage: 240 MG
     Route: 048

REACTIONS (3)
  - Blindness [Unknown]
  - Headache [Unknown]
  - Angina pectoris [Unknown]

NARRATIVE: CASE EVENT DATE: 201302
